FAERS Safety Report 5050125-5 (Version None)
Quarter: 2006Q3

REPORT INFORMATION
  Report Type: 
  Country: None (occurrence: None)
  Receive Date: 20060713
  Receipt Date: 20060504
  Transmission Date: 20061208
  Serious: Yes (Other)
  Sender: FDA-Public Use
  Company Number: PT-AMGEN-UK178742

PATIENT
  Sex: Female
  Weight: 46 kg

DRUGS (6)
  1. MIMPARA [Suspect]
     Indication: HYPERPARATHYROIDISM SECONDARY
     Route: 048
     Dates: start: 20060526, end: 20060530
  2. VITAMIN B COMPLEX CAP [Concomitant]
     Dates: start: 20040306
  3. ARANESP [Concomitant]
     Dates: start: 20041209
  4. FOLIC ACID [Concomitant]
     Dates: start: 20040306
  5. TICLODIPINE [Concomitant]
     Dates: start: 20040327
  6. ZEMPLAR [Concomitant]
     Dates: start: 20050822

REACTIONS (1)
  - ABASIA [None]
